FAERS Safety Report 8490512-6 (Version None)
Quarter: 2012Q3

REPORT INFORMATION
  Report Type: 
  Country: None (occurrence: None)
  Receive Date: 20120705
  Receipt Date: 20120702
  Transmission Date: 20120928
  Serious: Yes (Life-Threatening)
  Sender: FDA-Public Use
  Company Number: PHHY2012GB045730

PATIENT
  Age: 17 Year
  Sex: Female
  Weight: 50 kg

DRUGS (1)
  1. AZITHROMYCIN [Suspect]
     Dosage: 500 MG
     Route: 048
     Dates: start: 20120528, end: 20120528

REACTIONS (1)
  - ANAPHYLACTIC SHOCK [None]
